FAERS Safety Report 10561067 (Version 1)
Quarter: 2014Q4

REPORT INFORMATION
  Report Type: Spontaneous
  Country: US (occurrence: US)
  Receive Date: 20141103
  Receipt Date: 20141103
  Transmission Date: 20150529
  Serious: Yes (Hospitalization)
  Sender: FDA-Public Use
  Company Number: US-CELGENE-USA-2014104529

PATIENT
  Sex: Female

DRUGS (1)
  1. THALOMID [Suspect]
     Active Substance: THALIDOMIDE
     Indication: PRURIGO
     Dosage: 50 MILLIGRAM
     Route: 048
     Dates: start: 20140927

REACTIONS (1)
  - Venous occlusion [Unknown]

NARRATIVE: CASE EVENT DATE: 2014
